FAERS Safety Report 14070572 (Version 1)
Quarter: 2017Q4

REPORT INFORMATION
  Report Type: Spontaneous
  Country: US (occurrence: US)
  Receive Date: 20171011
  Receipt Date: 20171011
  Transmission Date: 20180321
  Serious: Yes (Other)
  Sender: FDA-Public Use
  Company Number: US-BRISTOL-MYERS SQUIBB COMPANY-BMS-2017-089298

PATIENT
  Sex: Male
  Weight: 83.9 kg

DRUGS (1)
  1. OPDIVO [Suspect]
     Active Substance: NIVOLUMAB
     Indication: NON-SMALL CELL LUNG CANCER
     Dosage: UNK, Q2WK
     Route: 042

REACTIONS (11)
  - Joint swelling [Unknown]
  - Asthenia [Unknown]
  - Pain [Unknown]
  - Arthralgia [Unknown]
  - Neck pain [Unknown]
  - Drug ineffective [Unknown]
  - Bone pain [Unknown]
  - Arthritis [Unknown]
  - Rash [Unknown]
  - Musculoskeletal pain [Unknown]
  - Pruritus [Unknown]
